FAERS Safety Report 23989952 (Version 2)
Quarter: 2024Q3

REPORT INFORMATION
  Report Type: Spontaneous
  Country: IN (occurrence: IN)
  Receive Date: 20240619
  Receipt Date: 20240903
  Transmission Date: 20241017
  Serious: Yes (Other)
  Sender: PFIZER
  Company Number: IN-PFIZER INC-PV202300124351

PATIENT
  Age: 40 Year
  Sex: Female

DRUGS (1)
  1. CRIZOTINIB [Suspect]
     Active Substance: CRIZOTINIB
     Dosage: 250 MG, 2X/DAY
     Route: 048

REACTIONS (5)
  - Deep vein thrombosis [Unknown]
  - Weight increased [Unknown]
  - Heart rate increased [Not Recovered/Not Resolved]
  - Peripheral swelling [Unknown]
  - Lymphoedema [Unknown]

NARRATIVE: CASE EVENT DATE: 20240701
